FAERS Safety Report 5069139-4 (Version None)
Quarter: 2006Q3

REPORT INFORMATION
  Report Type: 
  Country: None (occurrence: None)
  Receive Date: 20060731
  Receipt Date: 20060720
  Transmission Date: 20061208
  Serious: Yes (Other)
  Sender: FDA-Public Use
  Company Number: HQWYE382911NOV04

PATIENT
  Age: 59 Year
  Sex: Female

DRUGS (5)
  1. PREMPRO [Suspect]
  2. ESTRACE [Suspect]
  3. ESTRADIOL [Suspect]
  4. MEDROXYPROGESTERONE [Suspect]
  5. PROVERA [Suspect]

REACTIONS (14)
  - BACK PAIN [None]
  - BREAST CANCER METASTATIC [None]
  - DEEP VEIN THROMBOSIS [None]
  - DYSSTASIA [None]
  - HYPOAESTHESIA [None]
  - LYMPHOEDEMA [None]
  - METASTASES TO BONE [None]
  - NEUTROPENIA [None]
  - OESTROGEN RECEPTOR ASSAY POSITIVE [None]
  - PROGESTERONE RECEPTOR ASSAY POSITIVE [None]
  - PULMONARY EMBOLISM [None]
  - SEPSIS [None]
  - SPINAL COMPRESSION FRACTURE [None]
  - STAPHYLOCOCCAL INFECTION [None]
